FAERS Safety Report 9686589 (Version 3)
Quarter: 2014Q1

REPORT INFORMATION
  Report Type: Spontaneous
  Country: US (occurrence: US)
  Receive Date: 20131113
  Receipt Date: 20140214
  Transmission Date: 20141002
  Serious: Yes (Other)
  Sender: FDA-Public Use
  Company Number: US-PFIZER INC-2013250036

PATIENT
  Age: 33 Year
  Sex: Male
  Weight: 86 kg

DRUGS (4)
  1. ENBREL [Suspect]
     Indication: RHEUMATOID ARTHRITIS
     Dosage: 50 MG, ONCE A WEEK
     Route: 058
     Dates: start: 2004
  2. ENBREL [Suspect]
     Dosage: 25 MG, WEEKLY
     Route: 058
  3. ENBREL [Suspect]
     Dosage: UNK, ONCE A WEEK
     Route: 058
  4. METHOTREXATE SODIUM [Suspect]
     Dosage: 25 MG, 2 TIMES A WEEK

REACTIONS (6)
  - Agitation [Unknown]
  - Disorientation [Unknown]
  - Fatigue [Unknown]
  - Nausea [Not Recovered/Not Resolved]
  - Injection site bruising [Unknown]
  - Feeling abnormal [Not Recovered/Not Resolved]
